FAERS Safety Report 7439652-0 (Version None)
Quarter: 2011Q2

REPORT INFORMATION
  Report Type: 
  Country: None (occurrence: None)
  Receive Date: 20110427
  Receipt Date: 20110421
  Transmission Date: 20111010
  Serious: Yes (Life-Threatening, Hospitalization)
  Sender: FDA-Public Use
  Company Number: JP-SP-2011-02028

PATIENT
  Age: 66 Year
  Sex: Male

DRUGS (12)
  1. RABEPRAZOLE SODIUM [Concomitant]
     Route: 048
  2. TICOPIDINE HYDROCHLORIDE [Concomitant]
     Route: 048
  3. AMLODIPINE BESILATE [Concomitant]
     Route: 048
  4. METFFORMIN HYDROCHLORIDE [Concomitant]
     Route: 048
  5. IMMUCYST [Suspect]
     Indication: BLADDER CANCER
     Route: 043
     Dates: start: 20110120, end: 20110224
  6. DOXAZOSIN MESILATE [Concomitant]
     Route: 048
  7. ASPIRIN [Concomitant]
     Route: 048
  8. UFT [Concomitant]
     Route: 048
  9. PITAVASTATIN CALCIUM [Concomitant]
     Dosage: 2 MG, TWICE
     Route: 048
     Dates: start: 20110310
  10. CANDESARTAN CILEXETIL [Concomitant]
     Route: 048
  11. ETIZOLAM [Concomitant]
     Route: 048
  12. SILODOSIN [Concomitant]
     Route: 048

REACTIONS (1)
  - HYPERGLYCAEMIC HYPEROSMOLAR NONKETOTIC SYNDROME [None]
